FAERS Safety Report 15777153 (Version 3)
Quarter: 2019Q1

REPORT INFORMATION
  Report Type: Spontaneous
  Country: PT (occurrence: PT)
  Receive Date: 20181231
  Receipt Date: 20190218
  Transmission Date: 20190417
  Serious: Yes (Disabling)
  Sender: FDA-Public Use
  Company Number: PT-009507513-1812PRT012689

PATIENT
  Age: 78 Year
  Sex: Female

DRUGS (1)
  1. ELOCOM [Suspect]
     Active Substance: MOMETASONE FUROATE
     Indication: ECZEMA
     Dosage: USED THE PRODUCT TWO TIMES

REACTIONS (2)
  - Off label use [Unknown]
  - Hypoacusis [Recovering/Resolving]
